FAERS Safety Report 10967002 (Version 1)
Quarter: 2015Q1

REPORT INFORMATION
  Report Type: Spontaneous
  Country: US (occurrence: None)
  Receive Date: 20150327
  Receipt Date: 20150327
  Transmission Date: 20150721
  Serious: Yes (Other)
  Sender: FDA-Public Use
  Company Number: None

PATIENT
  Age: 72 Year
  Sex: Male
  Weight: 106.6 kg

DRUGS (19)
  1. CLONIDINE. [Concomitant]
     Active Substance: CLONIDINE
  2. ASPIRIN. [Concomitant]
     Active Substance: ASPIRIN
  3. BP METER [Concomitant]
  4. BLOOD SUGAR METER [Concomitant]
  5. MILK THISTEL [Concomitant]
  6. OCUVITE PRESSER VISIOUS [Concomitant]
  7. HUMULIN 70/30 [Concomitant]
     Active Substance: INSULIN HUMAN
  8. POTASSIUM [Concomitant]
     Active Substance: POTASSIUM
  9. CARVEDILOL. [Concomitant]
     Active Substance: CARVEDILOL
  10. FISH OIL [Concomitant]
     Active Substance: FISH OIL
  11. FUROSEMIDE. [Concomitant]
     Active Substance: FUROSEMIDE
  12. GLUCOSAMINE  W/CHONDROTIN [Concomitant]
  13. METFORMIN [Concomitant]
     Active Substance: METFORMIN HYDROCHLORIDE
  14. SAW PALMETTO [Concomitant]
     Active Substance: SAW PALMETTO
  15. FOSINOPRIL [Concomitant]
     Active Substance: FOSINOPRIL
  16. DILTIAZEM [Concomitant]
     Active Substance: DILTIAZEM
  17. DILTIAZEM [Suspect]
     Active Substance: DILTIAZEM
     Indication: BLOOD PRESSURE MANAGEMENT
     Dosage: 1 DAILY / BETIME ONCE DAILY TAKEN BY MOUTH
     Route: 048
  18. OMEPRAZOLE. [Concomitant]
     Active Substance: OMEPRAZOLE
  19. CENTRUM SILVER [Concomitant]
     Active Substance: VITAMINS

REACTIONS (9)
  - Product quality issue [None]
  - Eye haemorrhage [None]
  - Hypertension [None]
  - Drug effect decreased [None]
  - Blood pressure inadequately controlled [None]
  - Memory impairment [None]
  - Drug dose omission [None]
  - Product substitution issue [None]
  - Blindness transient [None]

NARRATIVE: CASE EVENT DATE: 20150304
